FAERS Safety Report 4884629-2 (Version None)
Quarter: 2006Q1

REPORT INFORMATION
  Report Type: 
  Country: None (occurrence: None)
  Receive Date: 20060117
  Receipt Date: 20060103
  Transmission Date: 20060701
  Serious: Yes (Death, Life-Threatening, Hospitalization)
  Sender: FDA-Public Use
  Company Number: USA-2006-0022083

PATIENT
  Age: 62 Year
  Sex: Male
  Weight: 82.5 kg

DRUGS (3)
  1. MORPHINE SULFATE [Suspect]
     Indication: BACK PAIN
  2. PERCOCET [Suspect]
     Indication: BACK PAIN
  3. DIAZEPAM [Suspect]

REACTIONS (35)
  - ACUTE MYOCARDIAL INFARCTION [None]
  - AORTIC ARTERIOSCLEROSIS [None]
  - ARTERIOSCLEROSIS CORONARY ARTERY [None]
  - BACK PAIN [None]
  - CARDIAC ARREST [None]
  - CHEST X-RAY ABNORMAL [None]
  - COLITIS [None]
  - COMA [None]
  - COMPLETED SUICIDE [None]
  - CONDITION AGGRAVATED [None]
  - CORONARY ARTERY OCCLUSION [None]
  - CORONARY ARTERY STENOSIS [None]
  - DIFFUSE ALVEOLAR DAMAGE [None]
  - DISORIENTATION [None]
  - DRUG TOXICITY [None]
  - EMPHYSEMA [None]
  - FAT NECROSIS [None]
  - HYPOTENSION [None]
  - INTENTIONAL DRUG MISUSE [None]
  - LETHARGY [None]
  - LOSS OF CONSCIOUSNESS [None]
  - MAJOR DEPRESSION [None]
  - MENTAL STATUS CHANGES [None]
  - METABOLIC ACIDOSIS [None]
  - MULTIPLE DRUG OVERDOSE INTENTIONAL [None]
  - PNEUMONIA [None]
  - RESPIRATORY ACIDOSIS [None]
  - RESPIRATORY FAILURE [None]
  - RIB FRACTURE [None]
  - SEPSIS [None]
  - SHOCK [None]
  - SUICIDAL IDEATION [None]
  - TACHYCARDIA [None]
  - THYROID DISORDER [None]
  - WHITE BLOOD CELL COUNT INCREASED [None]
